FAERS Safety Report 23742136 (Version 2)
Quarter: 2024Q2

REPORT INFORMATION
  Report Type: Spontaneous
  Country: IL (occurrence: IL)
  Receive Date: 20240415
  Receipt Date: 20240501
  Transmission Date: 20240715
  Serious: Yes (Other)
  Sender: FDA-Public Use
  Company Number: IL-AMERICAN REGENT INC-2024001304

PATIENT
  Age: 30 Year
  Sex: Female

DRUGS (1)
  1. FERINJECT [Suspect]
     Active Substance: FERRIC CARBOXYMALTOSE
     Indication: Product used for unknown indication
     Dosage: 500 MILLIGRAM
     Dates: start: 20240331, end: 20240331

REACTIONS (3)
  - Type I hypersensitivity [Recovered/Resolved]
  - Maternal exposure during pregnancy [Unknown]
  - Product complaint [Unknown]

NARRATIVE: CASE EVENT DATE: 20240331
